FAERS Safety Report 6584856-2 (Version None)
Quarter: 2010Q1

REPORT INFORMATION
  Report Type: 
  Country: None (occurrence: None)
  Receive Date: 20100217
  Receipt Date: 20100209
  Transmission Date: 20100710
  Serious: Yes (Hospitalization)
  Sender: FDA-Public Use
  Company Number: FR-JNJFOC-20100205239

PATIENT
  Age: 85 Year
  Sex: Female

DRUGS (3)
  1. REMICADE [Suspect]
     Indication: RHEUMATOID ARTHRITIS
     Dosage: 100 MG
     Route: 042
  2. REMICADE [Suspect]
     Dosage: 100 MG
     Route: 042
  3. METHOTREXATE [Suspect]
     Indication: RHEUMATOID ARTHRITIS
     Dosage: DOSE: ^4 DF^
     Route: 048

REACTIONS (3)
  - BRONCHIECTASIS [None]
  - DRUG INEFFECTIVE [None]
  - LUNG INFECTION [None]
